FAERS Safety Report 10215204 (Version 1)
Quarter: 2014Q2

REPORT INFORMATION
  Report Type: Report from Study
  Country: US (occurrence: US)
  Receive Date: 20140603
  Receipt Date: 20140603
  Transmission Date: 20141212
  Serious: Yes (Other)
  Sender: FDA-Public Use
  Company Number: PHEH2014US010809

PATIENT
  Sex: Female

DRUGS (6)
  1. DIOVAN [Suspect]
  2. ENALAPRIL [Suspect]
  3. LISINOPRIL [Suspect]
  4. DILTIZEM [Concomitant]
  5. ZOLOFT [Concomitant]
  6. HYDROCHLOROTHIAZIDE [Concomitant]
     Indication: SWELLING

REACTIONS (5)
  - Myocardial infarction [Unknown]
  - Chest pain [Unknown]
  - Cardiac disorder [Unknown]
  - Abdominal pain upper [Unknown]
  - Drug ineffective [Unknown]
